FAERS Safety Report 7444432-6 (Version None)
Quarter: 2011Q2

REPORT INFORMATION
  Report Type: 
  Country: None (occurrence: None)
  Receive Date: 20110429
  Receipt Date: 20110401
  Transmission Date: 20111010
  Serious: Yes (Death, Hospitalization, Other)
  Sender: FDA-Public Use
  Company Number: US-BAYER-2011-028917

PATIENT
  Age: 72 Year
  Sex: Male
  Weight: 98.866 kg

DRUGS (12)
  1. DECADRON [Concomitant]
     Dosage: 16 MG, ONCE
     Route: 042
     Dates: start: 20110322, end: 20110322
  2. POTASSIUM CHLORIDE W/SODIUM CHLORIDE [Concomitant]
     Dosage: 1250 ML, TOTAL DOSE
     Route: 042
     Dates: start: 20110322, end: 20110322
  3. CISPLATIN [Suspect]
     Indication: SMALL CELL LUNG CANCER STAGE UNSPECIFIED
     Dosage: 122 MG, UNK
     Route: 042
     Dates: start: 20110322, end: 20110322
  4. NORMAL SALINE [Concomitant]
     Dosage: FLUSH
     Route: 042
     Dates: start: 20110322, end: 20110324
  5. SORAFENIB (RAF KINASE INHIBITOR) [Suspect]
     Indication: SMALL CELL LUNG CANCER STAGE UNSPECIFIED
     Dosage: 200 MG, BID
     Route: 048
     Dates: start: 20110322, end: 20110331
  6. EMEND [Concomitant]
     Dosage: 125 MG, ONCE
     Route: 048
     Dates: start: 20110322, end: 20110322
  7. XGEVA [Concomitant]
     Dosage: 120 MG, ONCE
     Route: 058
     Dates: start: 20110322, end: 20110322
  8. WARFARIN [Concomitant]
     Indication: ATRIAL FIBRILLATION
  9. ETOPOSIDE [Suspect]
     Indication: SMALL CELL LUNG CANCER STAGE UNSPECIFIED
     Dosage: 244 MG, QD
     Route: 042
     Dates: start: 20110322, end: 20110324
  10. ALOXI [Concomitant]
     Dosage: 0.25 MG, ONCE
     Route: 040
     Dates: start: 20110322, end: 20110322
  11. DECADRON [Concomitant]
     Dosage: 8 MG, QD
     Route: 042
     Dates: start: 20110323, end: 20110324
  12. ZOFRAN [Concomitant]
     Dosage: 12 MG, QD
     Route: 042
     Dates: start: 20110323, end: 20110324

REACTIONS (11)
  - BRADYCARDIA [None]
  - RENAL FAILURE ACUTE [None]
  - DEATH [None]
  - DEHYDRATION [None]
  - SEPSIS [None]
  - STOMATITIS [None]
  - FEBRILE NEUTROPENIA [None]
  - RESPIRATORY FAILURE [None]
  - METABOLIC ACIDOSIS [None]
  - HYPOTENSION [None]
  - DIARRHOEA [None]
